FAERS Safety Report 5427637-5 (Version None)
Quarter: 2007Q3

REPORT INFORMATION
  Report Type: 
  Country: None (occurrence: None)
  Receive Date: 20070823
  Receipt Date: 20070810
  Transmission Date: 20080115
  Serious: Yes (Other)
  Sender: FDA-Public Use
  Company Number: 159909ISR

PATIENT
  Age: 84 Year
  Sex: Female

DRUGS (5)
  1. PACLITAXEL [Suspect]
     Dosage: 261 MG (CYCLICAL) INTRAVENOUS (NOT OTHERWISE SPECIFIED)
     Route: 042
     Dates: start: 20070705
  2. ONDANSETRON HCL [Concomitant]
  3. METHYLPREDNISOLONE SODIUM SUCCINATE [Concomitant]
  4. DEXCHLORPHENIRAMINE MALEATE [Concomitant]
  5. CARBOPLATIN [Concomitant]

REACTIONS (3)
  - BLOOD PRESSURE INCREASED [None]
  - HYPERHIDROSIS [None]
  - RENAL PAIN [None]
